FAERS Safety Report 13873181 (Version 4)
Quarter: 2017Q4

REPORT INFORMATION
  Report Type: Spontaneous
  Country: US (occurrence: US)
  Receive Date: 20170816
  Receipt Date: 20171102
  Transmission Date: 20180320
  Serious: Yes (Hospitalization, Other)
  Sender: FDA-Public Use
  Company Number: US-AMGEN-USASP2017121830

PATIENT
  Age: 66 Year
  Sex: Female

DRUGS (1)
  1. PROLIA [Suspect]
     Active Substance: DENOSUMAB
     Indication: OSTEOPOROSIS POSTMENOPAUSAL
     Dosage: 60 MG/ML, UNK
     Route: 065
     Dates: start: 201602

REACTIONS (13)
  - Dental operation [Recovering/Resolving]
  - Gingival disorder [Unknown]
  - Gingival abscess [Unknown]
  - Weight decreased [Unknown]
  - Crohn^s disease [Unknown]
  - Gingivitis [Unknown]
  - Conjunctivitis [Unknown]
  - Gastric ulcer [Unknown]
  - Hip fracture [Unknown]
  - Chronic obstructive pulmonary disease [Unknown]
  - Fall [Unknown]
  - Malabsorption [Unknown]
  - Malnutrition [Unknown]

NARRATIVE: CASE EVENT DATE: 20160228
